FAERS Safety Report 4993858-9 (Version None)
Quarter: 2006Q2

REPORT INFORMATION
  Report Type: 
  Country: None (occurrence: None)
  Receive Date: 20060505
  Receipt Date: 20051019
  Transmission Date: 20061013
  Serious: Yes (Hospitalization)
  Sender: FDA-Public Use
  Company Number: US-MERCK-0510USA08126

PATIENT
  Age: 73 Year
  Sex: Female
  Weight: 57 kg

DRUGS (8)
  1. VIOXX [Suspect]
     Indication: ARTHRALGIA
     Route: 048
     Dates: start: 19990101, end: 20011226
  2. ALBUTEROL [Concomitant]
     Route: 065
  3. ZANTAC [Concomitant]
     Route: 065
  4. COZAAR [Concomitant]
     Route: 065
  5. CALCIUM (UNSPECIFIED) [Concomitant]
     Route: 065
  6. LEVOXYL [Concomitant]
     Route: 048
  7. ROCALTROL [Concomitant]
     Route: 048
  8. DIOVAN [Concomitant]
     Route: 065

REACTIONS (15)
  - AORTIC ARTERIOSCLEROSIS [None]
  - BUNDLE BRANCH BLOCK RIGHT [None]
  - COLITIS ISCHAEMIC [None]
  - DIARRHOEA [None]
  - DIVERTICULUM [None]
  - DYSPEPSIA [None]
  - GASTRIC DISORDER [None]
  - GASTRITIS [None]
  - GASTROOESOPHAGEAL REFLUX DISEASE [None]
  - HAEMORRHOIDS [None]
  - LEUKOCYTOSIS [None]
  - OESOPHAGITIS [None]
  - OSTEOARTHRITIS [None]
  - SHOULDER PAIN [None]
  - THROMBOSIS [None]
